FAERS Safety Report 24256310 (Version 2)
Quarter: 2025Q4

REPORT INFORMATION
  Report Type: Report from Study
  Country: US (occurrence: US)
  Receive Date: 20240828
  Receipt Date: 20251005
  Transmission Date: 20260118
  Serious: No
  Sender: SANOFI AVENTIS
  Company Number: US-SA-SAC20240821001319

PATIENT
  Age: 4 Year
  Sex: Male
  Weight: 14.515 kg

DRUGS (2)
  1. DUPILUMAB [Suspect]
     Active Substance: DUPILUMAB
     Indication: Dermatitis atopic
     Dosage: 300 MG, Q4W
     Route: 058
  2. DUPILUMAB [Suspect]
     Active Substance: DUPILUMAB
     Dosage: 300 MG, QOW
     Route: 058

REACTIONS (3)
  - Rash [Unknown]
  - Incorrect dose administered [Unknown]
  - Inappropriate schedule of product administration [Unknown]
